FAERS Safety Report 12180472 (Version 1)
Quarter: 2016Q1

REPORT INFORMATION
  Report Type: Spontaneous
  Country: GB (occurrence: GB)
  Receive Date: 20160315
  Receipt Date: 20160315
  Transmission Date: 20160526
  Serious: Yes (Disabling)
  Sender: FDA-Public Use
  Company Number: GB-PFIZER INC-2016154050

PATIENT
  Age: 45 Year
  Sex: Female
  Weight: 85 kg

DRUGS (8)
  1. PREGABALIN. [Suspect]
     Active Substance: PREGABALIN
     Dosage: UNK
     Route: 048
     Dates: start: 20160229
  2. GABAPENTIN. [Concomitant]
     Active Substance: GABAPENTIN
     Dosage: 1 DF, 3X/DAY
  3. AMITRIPTYLINE HYDROCHLORIDE. [Concomitant]
     Active Substance: AMITRIPTYLINE HYDROCHLORIDE
     Dosage: 1 DF, 1X/DAY AT NIGHT
     Dates: start: 20151210, end: 20151217
  4. GABAPENTIN. [Concomitant]
     Active Substance: GABAPENTIN
     Dosage: ONE ONCE A DAY
     Dates: start: 20160208
  5. GABAPENTIN. [Concomitant]
     Active Substance: GABAPENTIN
     Dosage: 1 DF, 2X/DAY
  6. NEFOPAM [Concomitant]
     Active Substance: NEFOPAM
     Dosage: 1 DF, 3X/DAY
     Dates: start: 20160229
  7. NITROFURANTOIN. [Concomitant]
     Active Substance: NITROFURANTOIN
     Dosage: 1 DF, 4X/DAY
     Dates: start: 20160222, end: 20160225
  8. TRIMETHOPRIM. [Concomitant]
     Active Substance: TRIMETHOPRIM
     Dosage: 1 DF, 2X/DAY
     Dates: start: 20160123, end: 20160126

REACTIONS (4)
  - Amnesia [Recovered/Resolved]
  - Dizziness [Recovered/Resolved]
  - Vision blurred [Recovered/Resolved]
  - Mood swings [Recovered/Resolved]

NARRATIVE: CASE EVENT DATE: 20160229
